FAERS Safety Report 7057425-8 (Version None)
Quarter: 2010Q4

REPORT INFORMATION
  Report Type: 
  Country: None (occurrence: None)
  Receive Date: 20101022
  Receipt Date: 20101013
  Transmission Date: 20110411
  Serious: Yes (Hospitalization, Other)
  Sender: FDA-Public Use
  Company Number: JP-ROCHE-706763

PATIENT
  Sex: Female
  Weight: 45 kg

DRUGS (11)
  1. AVASTIN [Suspect]
     Indication: RECTAL CANCER METASTATIC
     Dosage: DOSAGE IS UNCERTAIN.
     Route: 041
     Dates: start: 20091020, end: 20100309
  2. OXALIPLATIN [Concomitant]
     Dosage: DOSAGE IS UNCERTAIN.
     Route: 041
     Dates: start: 20091020, end: 20100309
  3. FLUOROURACIL [Concomitant]
     Dosage: DOSAGE IS UNCERTAIN.
     Route: 040
     Dates: start: 20091020, end: 20100309
  4. FLUOROURACIL [Concomitant]
     Dosage: DOSAGE IS UNCERTAIN
     Route: 040
     Dates: start: 20091020, end: 20100301
  5. LEUCOVORIN CALCIUM [Concomitant]
     Dosage: DOSAGE IS UNCERTAIN.
     Route: 041
     Dates: start: 20091020, end: 20100309
  6. KYTRIL [Concomitant]
     Route: 041
     Dates: start: 20091020, end: 20100309
  7. DECADRON PHOSPHATE [Concomitant]
     Dosage: DRUG REPORTED AS:DECADRON
     Route: 042
     Dates: start: 20091020, end: 20100309
  8. URINORM [Concomitant]
     Route: 048
     Dates: start: 20090818, end: 20091221
  9. OMEPRAZOLE [Concomitant]
     Route: 048
     Dates: start: 20090414, end: 20091221
  10. LENDORMIN [Concomitant]
     Route: 048
     Dates: start: 20091017
  11. DORAL [Concomitant]
     Route: 048
     Dates: start: 20091020, end: 20091029

REACTIONS (2)
  - HYPOKALAEMIA [None]
  - RENAL TUBULAR ACIDOSIS [None]
